FAERS Safety Report 18083241 (Version 1)
Quarter: 2020Q3

REPORT INFORMATION
  Report Type: Spontaneous
  Country: CN (occurrence: CN)
  Receive Date: 20200729
  Receipt Date: 20200729
  Transmission Date: 20201103
  Serious: Yes (Hospitalization)
  Sender: FDA-Public Use
  Company Number: CN-PFIZER INC-2020284286

PATIENT
  Age: 60 Year
  Sex: Male
  Weight: 63 kg

DRUGS (3)
  1. MEDROL [Suspect]
     Active Substance: METHYLPREDNISOLONE
     Indication: PEMPHIGUS
     Dosage: 40 MG, 1X/DAY
     Route: 048
     Dates: start: 20200429, end: 20200724
  2. MYCOPHENOLATE MOFETIL. [Concomitant]
     Active Substance: MYCOPHENOLATE MOFETIL
     Indication: IMMUNOSUPPRESSION
     Dosage: 0.25 G, 2X/DAY
     Route: 048
     Dates: start: 20200429, end: 20200724
  3. PANTOLOC [PANTOPRAZOLE] [Concomitant]
     Active Substance: PANTOPRAZOLE SODIUM
     Indication: SYMPTOMATIC TREATMENT
     Dosage: 40 MG, 1X/DAY
     Route: 048
     Dates: start: 20200429, end: 20200724

REACTIONS (2)
  - Blood glucose increased [Unknown]
  - Oedema [Unknown]

NARRATIVE: CASE EVENT DATE: 20200620
